FAERS Safety Report 10215543 (Version 1)
Quarter: 2014Q2

REPORT INFORMATION
  Report Type: Report from Study
  Country: US (occurrence: US)
  Receive Date: 20140604
  Receipt Date: 20140604
  Transmission Date: 20141212
  Serious: Yes (Hospitalization)
  Sender: FDA-Public Use
  Company Number: US-BIOGENIDEC-2014BI050367

PATIENT
  Sex: Female
  Weight: 84 kg

DRUGS (11)
  1. TECFIDERA [Suspect]
     Indication: MULTIPLE SCLEROSIS
     Route: 048
     Dates: start: 201403, end: 20140519
  2. AMPYRA [Concomitant]
  3. DEPAKOTE [Concomitant]
  4. CARISOPRADOL [Concomitant]
  5. PROMETHAZINE [Concomitant]
  6. IBUPROFEN [Concomitant]
  7. GEODON [Concomitant]
  8. AMITRIPTYLINE [Concomitant]
  9. HYDOCHLOROTHIAZIDE [Concomitant]
  10. SEROQUEL [Concomitant]
  11. CYMBALTA [Concomitant]

REACTIONS (2)
  - Hallucination, auditory [Unknown]
  - Hallucination, visual [Unknown]
